FAERS Safety Report 4808631-1 (Version None)
Quarter: 2005Q4

REPORT INFORMATION
  Report Type: 
  Country: None (occurrence: None)
  Receive Date: 20051025
  Receipt Date: 20051011
  Transmission Date: 20060501
  Serious: Yes (Disabling)
  Sender: FDA-Public Use
  Company Number: LV-GILEAD-2005-0008793

PATIENT
  Sex: Male

DRUGS (8)
  1. EMTRIVA [Suspect]
     Indication: HIV INFECTION
     Route: 048
     Dates: start: 20050913, end: 20050913
  2. VIREAD [Suspect]
     Indication: HIV INFECTION
     Route: 048
     Dates: start: 20050913, end: 20050913
  3. EFAVIRENZ [Concomitant]
     Indication: HIV INFECTION
  4. FLUCONASOLE [Concomitant]
     Indication: DRUG USE FOR UNKNOWN INDICATION
     Dates: start: 20050909
  5. METAMIZOLUM [Concomitant]
     Indication: DRUG USE FOR UNKNOWN INDICATION
     Dates: start: 20050909
  6. DIAZEPAMUM [Concomitant]
     Indication: DRUG USE FOR UNKNOWN INDICATION
     Dates: start: 20050908
  7. METACLOPRAMIDUM [Concomitant]
     Indication: DRUG USE FOR UNKNOWN INDICATION
     Dates: start: 20050909
  8. TAVEGILUM [Concomitant]
     Indication: DRUG USE FOR UNKNOWN INDICATION
     Dates: start: 20050909

REACTIONS (3)
  - ANGIONEUROTIC OEDEMA [None]
  - PYREXIA [None]
  - RASH ERYTHEMATOUS [None]
